FAERS Safety Report 8789964 (Version 2)
Quarter: 2012Q4

REPORT INFORMATION
  Report Type: 
  Country: BR (occurrence: BR)
  Receive Date: 20120917
  Receipt Date: 20121012
  Transmission Date: 20130627
  Serious: Yes (Death)
  Sender: FDA-Public Use
  Company Number: BR-PFIZER INC-2012228122

PATIENT
  Age: 56 Year
  Sex: Female
  Weight: 78 kg

DRUGS (5)
  1. GEODON [Suspect]
     Indication: OBSESSIVE-COMPULSIVE DISORDER
     Dosage: UNK, 2x/day
     Route: 048
     Dates: start: 2002
  2. RIVOTRIL [Suspect]
     Indication: DEPRESSION
     Dosage: 10 mg, 1x/day
  3. OSCAL D [Concomitant]
     Dosage: 500 mg, 1x/day
  4. COLECALCIFEROL [Concomitant]
     Dosage: 25000 IU, alternate day
  5. EUTHYROX [Concomitant]
     Dosage: 100 mg, 1x/day

REACTIONS (6)
  - Intentional overdose [Fatal]
  - Completed suicide [Fatal]
  - Cardiac arrest [Fatal]
  - Brain hypoxia [Fatal]
  - Coma [Fatal]
  - Off label use [Unknown]
